FAERS Safety Report 14210717 (Version 2)
Quarter: 2017Q4

REPORT INFORMATION
  Report Type: Report from Study
  Country: CO (occurrence: CO)
  Receive Date: 20171121
  Receipt Date: 20171215
  Transmission Date: 20180321
  Serious: Yes (Hospitalization)
  Sender: FDA-Public Use
  Company Number: CO-JNJFOC-20171123076

PATIENT
  Age: 50 Year
  Sex: Female
  Weight: 69 kg

DRUGS (1)
  1. STELARA [Suspect]
     Active Substance: USTEKINUMAB
     Indication: PSORIASIS
     Route: 058
     Dates: start: 20171025

REACTIONS (1)
  - Cholelithiasis [Recovering/Resolving]

NARRATIVE: CASE EVENT DATE: 20171108
